FAERS Safety Report 7824218-0 (Version None)
Quarter: 2011Q4

REPORT INFORMATION
  Report Type: 
  Country: None (occurrence: None)
  Receive Date: 20111014
  Receipt Date: 20111005
  Transmission Date: 20120403
  Serious: Yes (Other)
  Sender: FDA-Public Use
  Company Number: AUR-APL-2011-05411

PATIENT
  Age: 25 Year
  Sex: Female

DRUGS (3)
  1. MIRTAZAPINE [Suspect]
     Indication: PRODUCT USED FOR UNKNOWN INDICATION
     Dosage: (30 MG),
     Dates: start: 20110823, end: 20110920
  2. LEVONORGESTREL W/ETHINYLESTRADIOL (EUGYNON) [Concomitant]
  3. VENLAFAXINE [Suspect]
     Indication: PRODUCT USED FOR UNKNOWN INDICATION
     Dosage: 37.5 MG (37.5 MG, 1 IN 1 D),
     Dates: start: 20110512

REACTIONS (3)
  - ANGIOEDEMA [None]
  - URTICARIA [None]
  - TACHYCARDIA [None]
